FAERS Safety Report 4941968-4 (Version None)
Quarter: 2006Q1

REPORT INFORMATION
  Report Type: 
  Country: None (occurrence: None)
  Receive Date: 20060313
  Receipt Date: 20051223
  Transmission Date: 20060701
  Serious: Yes (Other)
  Sender: FDA-Public Use
  Company Number: US-MERCK-0512USA03787

PATIENT
  Age: 52 Year
  Sex: Male
  Weight: 61 kg

DRUGS (4)
  1. VIOXX [Suspect]
     Indication: HEADACHE
     Route: 048
     Dates: start: 20010406, end: 20021217
  2. VIOXX [Suspect]
     Indication: NECK PAIN
     Route: 048
     Dates: start: 20010406, end: 20021217
  3. VIOXX [Suspect]
     Route: 048
     Dates: start: 20010406, end: 20021217
  4. VIOXX [Suspect]
     Route: 048
     Dates: start: 20010406, end: 20021217

REACTIONS (4)
  - CARDIAC VALVE DISEASE [None]
  - CEREBROVASCULAR ACCIDENT [None]
  - HEADACHE [None]
  - NECK PAIN [None]
